FAERS Safety Report 7053657-3 (Version None)
Quarter: 2010Q4

REPORT INFORMATION
  Report Type: 
  Country: None (occurrence: None)
  Receive Date: 20101014
  Receipt Date: 20101005
  Transmission Date: 20110411
  Serious: Yes (Hospitalization)
  Sender: FDA-Public Use
  Company Number: 2010SP038656

PATIENT
  Age: 64 Year
  Sex: Male

DRUGS (3)
  1. REMERON [Suspect]
     Indication: PANIC ATTACK
     Dosage: 15 MG; QD; PO
     Route: 048
     Dates: start: 20100517, end: 20100708
  2. PAROXETINE HCL [Concomitant]
  3. XANAX [Concomitant]

REACTIONS (6)
  - ELECTROCARDIOGRAM ST SEGMENT ELEVATION [None]
  - ERYTHEMA [None]
  - OEDEMA PERIPHERAL [None]
  - OLIGURIA [None]
  - PLEURAL EFFUSION [None]
  - RALES [None]
